FAERS Safety Report 13208087 (Version 1)
Quarter: 2017Q1

REPORT INFORMATION
  Report Type: Spontaneous
  Country: IT (occurrence: IT)
  Receive Date: 20170209
  Receipt Date: 20170209
  Transmission Date: 20170428
  Serious: Yes (Other)
  Sender: FDA-Public Use
  Company Number: IT-009507513-1702ITA001058

PATIENT
  Age: 68 Year
  Sex: Male

DRUGS (2)
  1. TEMOZOLOMIDE. [Suspect]
     Active Substance: TEMOZOLOMIDE
     Dosage: 4 CYCLES OF 150-200 MG/M2 A DAY FOR 5 DAYS OF A 28-DAY CYCLE
  2. TEMOZOLOMIDE. [Suspect]
     Active Substance: TEMOZOLOMIDE
     Dosage: 75MG/M2 A DAY

REACTIONS (1)
  - Haematotoxicity [Recovered/Resolved]
